FAERS Safety Report 16045880 (Version 1)
Quarter: 2019Q1

REPORT INFORMATION
  Report Type: Spontaneous
  Country: US (occurrence: US)
  Receive Date: 20190307
  Receipt Date: 20190307
  Transmission Date: 20190418
  Serious: No
  Sender: FDA-Public Use
  Company Number: US-009507513-1903USA002070

PATIENT
  Sex: Female

DRUGS (2)
  1. NEXPLANON [Suspect]
     Active Substance: ETONOGESTREL
     Dosage: IMPLANT
  2. NEXPLANON [Suspect]
     Active Substance: ETONOGESTREL
     Dosage: IMPLANT

REACTIONS (1)
  - Incorrect product administration duration [Unknown]
